FAERS Safety Report 20017990 (Version 1)
Quarter: 2021Q4

REPORT INFORMATION
  Report Type: Spontaneous
  Country: US (occurrence: US)
  Receive Date: 20211101
  Receipt Date: 20211101
  Transmission Date: 20220303
  Serious: No
  Sender: FDA-Public Use
  Company Number: US-STRONGBRIDGE BIOPHARMA-2021-STR-000344

PATIENT
  Sex: Male

DRUGS (1)
  1. KEVEYIS [Suspect]
     Active Substance: DICHLORPHENAMIDE
     Indication: Familial periodic paralysis
     Dosage: 50 MG, TID
     Route: 048
     Dates: start: 20200602

REACTIONS (4)
  - Muscular weakness [Recovering/Resolving]
  - Movement disorder [Recovering/Resolving]
  - Disease recurrence [Recovering/Resolving]
  - Inappropriate schedule of product administration [Unknown]
